FAERS Safety Report 10364543 (Version 2)
Quarter: 2014Q3

REPORT INFORMATION
  Report Type: Spontaneous
  Country: FR (occurrence: FR)
  Receive Date: 20140806
  Receipt Date: 20140806
  Transmission Date: 20150326
  Serious: Yes (Other)
  Sender: FDA-Public Use
  Company Number: FR-ASTRAZENECA-2014SE29810

PATIENT
  Age: 759 Month
  Sex: Female
  Weight: 65 kg

DRUGS (6)
  1. XEROQUEL [Suspect]
     Active Substance: QUETIAPINE FUMARATE
     Indication: BIPOLAR DISORDER
     Route: 048
     Dates: start: 20140114, end: 20140428
  2. IMOVANE [Concomitant]
     Active Substance: ZOPICLONE
     Route: 048
  3. MOVICOL [Concomitant]
     Active Substance: POLYETHYLENE GLYCOL 3350\POTASSIUM CHLORIDE\SODIUM BICARBONATE\SODIUM CHLORIDE
     Route: 048
  4. NUCTALON [Concomitant]
     Active Substance: ESTAZOLAM
     Route: 048
     Dates: start: 20140114
  5. LEPTICUR [Concomitant]
     Active Substance: TROPATEPINE HYDROCHLORIDE
     Dates: start: 20140614
  6. SERESTA [Concomitant]
     Active Substance: OXAZEPAM
     Dosage: 10 MILLIGRAMS IN THE EVENING AND IN THE MORNING AND 5 MILLIGRAM AT MIDDAY AND AT TEATIME
     Route: 048
     Dates: start: 20140114

REACTIONS (1)
  - Erythema multiforme [Recovered/Resolved]

NARRATIVE: CASE EVENT DATE: 201404
